FAERS Safety Report 4599309-0 (Version None)
Quarter: 2005Q1

REPORT INFORMATION
  Report Type: 
  Country: None (occurrence: None)
  Receive Date: 20050302
  Receipt Date: 20050302
  Transmission Date: 20050727
  Serious: Yes (Other)
  Sender: FDA-Public Use
  Company Number: None

PATIENT
  Age: 27 Year
  Sex: Female
  Weight: 97.5234 kg

DRUGS (8)
  1. EFFEXOR 75 XR [Suspect]
     Indication: DISSOCIATIVE IDENTITY DISORDER
     Dosage: 1 QD
     Dates: start: 20020101, end: 20040604
  2. TRAZODONE HCL [Suspect]
     Indication: SLEEP DISORDER
     Dosage: 1  QHS
     Dates: start: 20020101, end: 20040401
  3. PREDNISONE [Suspect]
     Dosage: ON AND OFF  FOR YEARS
  4. SINGULAIR [Suspect]
     Indication: POST-TRAUMATIC STRESS DISORDER
  5. VERAPAMIL [Suspect]
  6. TRILEPTAL [Suspect]
  7. AMBIEN [Suspect]
  8. PROZAC [Suspect]

REACTIONS (3)
  - BREAST DISCHARGE [None]
  - DRUG EXPOSURE DURING PREGNANCY [None]
  - PREGNANCY [None]
